FAERS Safety Report 15407009 (Version 1)
Quarter: 2018Q3

REPORT INFORMATION
  Report Type: Spontaneous
  Country: US (occurrence: US)
  Receive Date: 20180919
  Receipt Date: 20180919
  Transmission Date: 20181010
  Serious: Yes (Hospitalization)
  Sender: FDA-Public Use
  Company Number: None

PATIENT
  Age: 57 Year
  Sex: Male

DRUGS (10)
  1. HUMALOG [Concomitant]
     Active Substance: INSULIN LISPRO
  2. LEVEMIR [Concomitant]
     Active Substance: INSULIN DETEMIR
  3. SURE COMFORT [Concomitant]
  4. DEXAMETH PHO [Concomitant]
  5. ACCU?CHEK [Concomitant]
  6. CARVEDILOL. [Concomitant]
     Active Substance: CARVEDILOL
  7. ZOLPIDEM [Concomitant]
     Active Substance: ZOLPIDEM\ZOLPIDEM TARTRATE
  8. CLONIDINE. [Concomitant]
     Active Substance: CLONIDINE
  9. POLYMYXIN B / SOL [Concomitant]
  10. PROCRIT [Suspect]
     Active Substance: ERYTHROPOIETIN
     Indication: CHRONIC KIDNEY DISEASE
     Dosage: ?          OTHER FREQUENCY:Q21 DAYS;?
     Route: 058
     Dates: start: 20180220

REACTIONS (4)
  - Dialysis [None]
  - Hypertension [None]
  - Pneumonia [None]
  - Seizure [None]

NARRATIVE: CASE EVENT DATE: 20180903
